FAERS Safety Report 13653678 (Version 1)
Quarter: 2017Q2

REPORT INFORMATION
  Report Type: Spontaneous
  Country: US (occurrence: US)
  Receive Date: 20170614
  Receipt Date: 20170614
  Transmission Date: 20170830
  Serious: Yes (Death, Other)
  Sender: FDA-Public Use
  Company Number: US-SA-2017SA106380

PATIENT
  Age: 19 Year
  Sex: Male

DRUGS (2)
  1. CLOFARABINE. [Suspect]
     Active Substance: CLOFARABINE
     Indication: ACUTE MYELOID LEUKAEMIA RECURRENT
     Route: 065
  2. CYTARABINE. [Suspect]
     Active Substance: CYTARABINE
     Indication: ACUTE MYELOID LEUKAEMIA RECURRENT
     Route: 065

REACTIONS (12)
  - Respiratory failure [Fatal]
  - Neutropenia [Unknown]
  - Paraesthesia [Unknown]
  - Pain in extremity [Unknown]
  - Skin exfoliation [Unknown]
  - Cardiac failure [Fatal]
  - Sepsis [Unknown]
  - Enterococcal bacteraemia [Unknown]
  - Blister [Unknown]
  - Erythema [Unknown]
  - Oedema peripheral [Unknown]
  - Mucosal inflammation [Unknown]
